FAERS Safety Report 19614784 (Version 1)
Quarter: 2021Q3

REPORT INFORMATION
  Report Type: Spontaneous
  Country: US (occurrence: US)
  Receive Date: 20210727
  Receipt Date: 20210727
  Transmission Date: 20211014
  Serious: Yes (Other)
  Sender: FDA-Public Use
  Company Number: US-PFIZER INC-2021884059

PATIENT
  Age: 54 Year
  Sex: Male

DRUGS (5)
  1. LEVAQUIN [Concomitant]
     Active Substance: LEVOFLOXACIN
     Dosage: UNK
  2. INSULIN [Concomitant]
     Active Substance: INSULIN NOS
     Indication: DIABETES MELLITUS
     Dosage: UNK
  3. GEODON [Suspect]
     Active Substance: ZIPRASIDONE HYDROCHLORIDE\ZIPRASIDONE MESYLATE
     Dosage: UNK (INJECTED)
  4. DILAUDID [Interacting]
     Active Substance: HYDROMORPHONE HYDROCHLORIDE
     Dosage: UNK
  5. VANCOMYCIN [Concomitant]
     Active Substance: VANCOMYCIN
     Dosage: UNK

REACTIONS (10)
  - Vision blurred [Unknown]
  - Weight increased [Unknown]
  - Blood magnesium decreased [Unknown]
  - Cardiac disorder [Unknown]
  - Feeling abnormal [Unknown]
  - Dry mouth [Recovered/Resolved]
  - Skin discolouration [Unknown]
  - Drug interaction [Unknown]
  - Increased appetite [Unknown]
  - Product administration error [Unknown]
